FAERS Safety Report 5015254-0 (Version None)
Quarter: 2006Q2

REPORT INFORMATION
  Report Type: 
  Country: None (occurrence: None)
  Receive Date: 20060425
  Receipt Date: 20060109
  Transmission Date: 20061013
  Serious: No
  Sender: FDA-Public Use
  Company Number: 2006-BP-00223BP

PATIENT
  Sex: Male

DRUGS (1)
  1. APTIVUS/RITONAVIR CAPSULES [Suspect]
     Dosage: (SEE TEXT,TPV/R 250/100MG),PO
     Route: 048

REACTIONS (1)
  - EPIDIDYMITIS [None]
